FAERS Safety Report 8178659-5 (Version None)
Quarter: 2012Q1

REPORT INFORMATION
  Report Type: 
  Country: None (occurrence: None)
  Receive Date: 20120301
  Receipt Date: 20120221
  Transmission Date: 20120608
  Serious: Yes (Other)
  Sender: FDA-Public Use
  Company Number: US-ELI_LILLY_AND_COMPANY-US201202006062

PATIENT
  Sex: Male
  Weight: 75.283 kg

DRUGS (10)
  1. BYETTA [Suspect]
     Dosage: 10 UG, BID
     Route: 058
     Dates: end: 20110301
  2. LIPITOR [Concomitant]
     Dosage: 80 MG, QD
     Route: 048
  3. OXYCODONE HCL [Concomitant]
     Indication: PAIN
     Dosage: UNK
  4. BYETTA [Suspect]
     Indication: TYPE 2 DIABETES MELLITUS
     Dosage: 5 UG, BID
     Route: 058
     Dates: start: 20081120
  5. GLYBURIDE [Concomitant]
     Indication: TYPE 2 DIABETES MELLITUS
     Dosage: 2.5 MG, BID
     Route: 048
  6. CREON [Concomitant]
     Dosage: 24000 U, TID
     Route: 048
  7. MEGESTROL ACETATE [Concomitant]
     Dosage: 20 ML, QD
     Route: 048
  8. METFORMIN HCL [Concomitant]
     Indication: TYPE 2 DIABETES MELLITUS
     Dosage: 850 MG, BID
     Route: 048
  9. LISINOPRIL                              /USA/ [Concomitant]
     Dosage: 10 MG, QD
     Route: 048
  10. OMEPRAZOLE [Concomitant]
     Indication: ABDOMINAL PAIN
     Dosage: UNK
     Dates: start: 20110307, end: 20110310

REACTIONS (2)
  - WEIGHT DECREASED [None]
  - PANCREATIC CARCINOMA [None]
